FAERS Safety Report 4719941-0 (Version None)
Quarter: 2005Q3

REPORT INFORMATION
  Report Type: 
  Country: None (occurrence: None)
  Receive Date: 20050721
  Receipt Date: 20050204
  Transmission Date: 20060218
  Serious: No
  Sender: FDA-Public Use
  Company Number: US-GLAXOSMITHKLINE-A0543952A

PATIENT
  Age: 43 Year
  Sex: Female
  Weight: 76.4 kg

DRUGS (3)
  1. AVANDIA [Suspect]
     Dosage: 4MG PER DAY
     Route: 048
     Dates: start: 20050110, end: 20050207
  2. LEXAPRO [Concomitant]
     Indication: ANXIETY
     Dosage: 10MG UNKNOWN
     Route: 065
     Dates: start: 20040210
  3. ZEBETA [Concomitant]
     Indication: HYPERTENSION
     Dosage: 10MG UNKNOWN
     Route: 065
     Dates: start: 20040106

REACTIONS (2)
  - FATIGUE [None]
  - SKIN TIGHTNESS [None]
